FAERS Safety Report 24160136 (Version 1)
Quarter: 2024Q3

REPORT INFORMATION
  Report Type: Spontaneous
  Country: US (occurrence: US)
  Receive Date: 20240801
  Receipt Date: 20240801
  Transmission Date: 20241016
  Serious: Yes (Other)
  Sender: NOVO NORDISK
  Company Number: US-NOVOPROD-1260233

PATIENT
  Age: 65 Year
  Sex: Female

DRUGS (2)
  1. OZEMPIC [Suspect]
     Active Substance: SEMAGLUTIDE
     Indication: Obesity
  2. OZEMPIC [Suspect]
     Active Substance: SEMAGLUTIDE
     Indication: Weight decreased
     Dosage: UNK
     Route: 058
     Dates: start: 202406

REACTIONS (3)
  - Eye haemorrhage [Unknown]
  - Vitreous floaters [Unknown]
  - Off label use [Unknown]

NARRATIVE: CASE EVENT DATE: 20240601
